FAERS Safety Report 6143917-2 (Version None)
Quarter: 2009Q2

REPORT INFORMATION
  Report Type: 
  Country: None (occurrence: None)
  Receive Date: 20090406
  Receipt Date: 20090325
  Transmission Date: 20091009
  Serious: Yes (Other)
  Sender: FDA-Public Use
  Company Number: SE-PFIZER INC-2009186983

PATIENT

DRUGS (5)
  1. PROVERA [Suspect]
     Indication: MUCOUS MEMBRANE DISORDER
     Dosage: 10 MG, 1 TABLET DAILY
     Route: 048
     Dates: start: 20090304, end: 20090321
  2. COZAAR [Concomitant]
  3. OMEPRAZOL [Concomitant]
  4. AERIUS [Concomitant]
  5. PAROXETINE HCL [Concomitant]

REACTIONS (2)
  - HAEMORRHAGE [None]
  - PELVIC PAIN [None]
